FAERS Safety Report 19067515 (Version 1)
Quarter: 2021Q1

REPORT INFORMATION
  Report Type: Spontaneous
  Country: CA (occurrence: CA)
  Receive Date: 20210329
  Receipt Date: 20210329
  Transmission Date: 20210420
  Serious: Yes (Hospitalization, Other)
  Sender: FDA-Public Use
  Company Number: CA-BRISTOL-MYERS SQUIBB COMPANY-BMS-2021-026376

PATIENT
  Age: 87 Year
  Sex: Female

DRUGS (5)
  1. COUMADIN [Suspect]
     Active Substance: WARFARIN SODIUM
     Indication: ATRIAL FIBRILLATION
     Dosage: UNK
     Route: 065
     Dates: start: 2004, end: 2020
  2. WARFARIN SODIUM. [Suspect]
     Active Substance: WARFARIN SODIUM
     Dosage: 5 MILLIGRAM, QD
     Route: 065
  3. FRAGMIN [Suspect]
     Active Substance: DALTEPARIN SODIUM
     Indication: PRODUCT USED FOR UNKNOWN INDICATION
     Dosage: 10000 INTERNATIONAL UNIT, QD
     Route: 065
     Dates: start: 20210224
  4. WARFARIN SODIUM. [Suspect]
     Active Substance: WARFARIN SODIUM
     Indication: ATRIAL FIBRILLATION
     Dosage: UNK
     Route: 065
     Dates: start: 2020, end: 20210224
  5. WARFARIN SODIUM. [Suspect]
     Active Substance: WARFARIN SODIUM
     Dosage: ALTERNATING DAILY DOSES OF 2.5 MG AND 5MG UNTIL 14?MAR?2021
     Route: 065
     Dates: start: 20210304

REACTIONS (5)
  - COVID-19 [Unknown]
  - Gastric disorder [Unknown]
  - Fatigue [Unknown]
  - International normalised ratio increased [Unknown]
  - Arrhythmia [Unknown]

NARRATIVE: CASE EVENT DATE: 2020
